FAERS Safety Report 4514913-3 (Version None)
Quarter: 2004Q4

REPORT INFORMATION
  Report Type: 
  Country: None (occurrence: None)
  Receive Date: 20041129
  Receipt Date: 20041129
  Transmission Date: 20050328
  Serious: Yes (Death)
  Sender: FDA-Public Use
  Company Number: None

PATIENT
  Age: 74 Year
  Sex: Male
  Weight: 63.5036 kg

DRUGS (1)
  1. AMIODARONE HCL [Suspect]
     Dates: start: 20030315, end: 20031005

REACTIONS (1)
  - DRUG TOXICITY [None]
